FAERS Safety Report 4469344-1 (Version None)
Quarter: 2004Q4

REPORT INFORMATION
  Report Type: 
  Country: None (occurrence: None)
  Receive Date: 20041008
  Receipt Date: 20040122
  Transmission Date: 20050328
  Serious: No
  Sender: FDA-Public Use
  Company Number: US-BRISTOL-MYERS SQUIBB COMPANY-12484747

PATIENT
  Sex: Female

DRUGS (1)
  1. KARVEA [Suspect]
     Dates: start: 20040101

REACTIONS (4)
  - FATIGUE [None]
  - HYPOTENSION [None]
  - URINE OUTPUT INCREASED [None]
  - WEIGHT DECREASED [None]
